FAERS Safety Report 6145857-1 (Version None)
Quarter: 2009Q2

REPORT INFORMATION
  Report Type: 
  Country: None (occurrence: None)
  Receive Date: 20090406
  Receipt Date: 20090406
  Transmission Date: 20091009
  Serious: Yes (Other)
  Sender: FDA-Public Use
  Company Number: None

PATIENT
  Sex: Female

DRUGS (1)
  1. DEPAKOTE [Suspect]
     Indication: EPILEPSY
     Dosage: 500 MG IN AM, 250 MG @ NOON, 500 MG IN HS ON DAILY BASIS P.O.
     Route: 048

REACTIONS (3)
  - CONDITION AGGRAVATED [None]
  - PETIT MAL EPILEPSY [None]
  - THERAPEUTIC RESPONSE UNEXPECTED WITH DRUG SUBSTITUTION [None]
